FAERS Safety Report 16796800 (Version 12)
Quarter: 2020Q2

REPORT INFORMATION
  Report Type: Report from Study
  Country: US (occurrence: US)
  Receive Date: 20190911
  Receipt Date: 20200624
  Transmission Date: 20200713
  Serious: Yes (Hospitalization, Other)
  Sender: FDA-Public Use
  Company Number: US-ACTELION-A-US2019-192235

PATIENT
  Age: 39 Year
  Sex: Male
  Weight: 60.32 kg

DRUGS (7)
  1. UPTRAVI [Suspect]
     Active Substance: SELEXIPAG
     Dosage: 200 MCG, BID
     Route: 048
  2. UPTRAVI [Suspect]
     Active Substance: SELEXIPAG
     Dosage: 400 MCG, BID
     Route: 048
  3. LETAIRIS [Suspect]
     Active Substance: AMBRISENTAN
     Indication: PRODUCT USED FOR UNKNOWN INDICATION
     Dosage: UNK, QPM
     Route: 065
  4. UPTRAVI [Suspect]
     Active Substance: SELEXIPAG
     Indication: PULMONARY HYPERTENSION
     Dosage: 600 MCG, BID
     Route: 048
  5. UPTRAVI [Suspect]
     Active Substance: SELEXIPAG
     Dosage: 1000 MCG, BID
     Route: 048
  6. OXYGEN. [Concomitant]
     Active Substance: OXYGEN
     Dosage: 3 L
  7. ORENITRAM [Suspect]
     Active Substance: TREPROSTINIL
     Indication: PRODUCT USED FOR UNKNOWN INDICATION
     Dosage: UNK
     Route: 065

REACTIONS (43)
  - Unevaluable event [Unknown]
  - Swelling [Unknown]
  - Secretion discharge [Unknown]
  - Deafness [Unknown]
  - Dysphonia [Unknown]
  - Dry eye [Unknown]
  - Flank pain [Unknown]
  - Sinusitis [Unknown]
  - Anaphylactic reaction [Unknown]
  - Decreased appetite [Unknown]
  - Catheter site thrombosis [Unknown]
  - Heart rate increased [Not Recovered/Not Resolved]
  - Myalgia [Unknown]
  - Chest discomfort [Unknown]
  - Nasal congestion [Not Recovered/Not Resolved]
  - Infection [Unknown]
  - Pain [Unknown]
  - Anaemia [Unknown]
  - Malaise [Unknown]
  - Back pain [Unknown]
  - Sinus disorder [Unknown]
  - Arthralgia [Unknown]
  - Pyrexia [Recovered/Resolved]
  - Headache [Not Recovered/Not Resolved]
  - Facial pain [Unknown]
  - Post procedural complication [Unknown]
  - Dry mouth [Unknown]
  - Nasal dryness [Unknown]
  - Laryngitis [Unknown]
  - Post procedural infection [Unknown]
  - Chemotherapy [Unknown]
  - Heart rate abnormal [Unknown]
  - Gingivitis [Unknown]
  - Fatigue [Unknown]
  - Ear infection [Unknown]
  - Chest pain [Unknown]
  - Central venous catheterisation [Unknown]
  - Thrombosis [Unknown]
  - Rash [Unknown]
  - Sickle cell anaemia with crisis [Unknown]
  - Transfusion [Unknown]
  - Sinus congestion [Unknown]
  - Joint swelling [Not Recovered/Not Resolved]

NARRATIVE: CASE EVENT DATE: 20191202
